FAERS Safety Report 15456875 (Version 10)
Quarter: 2020Q2

REPORT INFORMATION
  Report Type: Report from Study
  Country: CA (occurrence: CA)
  Receive Date: 20181002
  Receipt Date: 20200423
  Transmission Date: 20200713
  Serious: Yes (Other)
  Sender: FDA-Public Use
  Company Number: CA-JNJFOC-20180931338

PATIENT
  Age: 59 Year
  Sex: Female
  Weight: 83.01 kg

DRUGS (3)
  1. STELARA [Suspect]
     Active Substance: USTEKINUMAB
     Route: 058
  2. STELARA [Suspect]
     Active Substance: USTEKINUMAB
     Route: 058
  3. STELARA [Suspect]
     Active Substance: USTEKINUMAB
     Indication: CROHN^S DISEASE
     Dosage: ON 14-APR-2020, THE PATIENT RECEIVED 20TH USTEKINUMAB INJECTION FOR DOSE OF 190 MG AND SURVEY WAS CO
     Route: 058
     Dates: start: 20170209

REACTIONS (10)
  - Stress [Not Recovered/Not Resolved]
  - Carpal tunnel syndrome [Not Recovered/Not Resolved]
  - Stomatitis [Recovering/Resolving]
  - Somnolence [Unknown]
  - Sjogren^s syndrome [Recovering/Resolving]
  - Pneumonia [Recovered/Resolved]
  - Muscular weakness [Recovered/Resolved]
  - Crohn^s disease [Recovering/Resolving]
  - Hypoaesthesia [Recovered/Resolved]
  - Vitamin B12 deficiency [Unknown]

NARRATIVE: CASE EVENT DATE: 20180925
